FAERS Safety Report 8063097-6 (Version None)
Quarter: 2012Q1

REPORT INFORMATION
  Report Type: 
  Country: None (occurrence: None)
  Receive Date: 20120123
  Receipt Date: 20120116
  Transmission Date: 20120608
  Serious: Yes (Death, Other)
  Sender: FDA-Public Use
  Company Number: US-ROCHE-1032103

PATIENT

DRUGS (1)
  1. XELODA [Suspect]
     Indication: ADENOCARCINOMA PANCREAS
     Dosage: ON DAYS 1 TO 14 OF A 21 DAY TREATMENT CYCLE
     Route: 048

REACTIONS (7)
  - DEATH [None]
  - DIARRHOEA [None]
  - VOMITING [None]
  - DYSPHAGIA [None]
  - URINARY TRACT INFECTION [None]
  - NAUSEA [None]
  - PALMAR-PLANTAR ERYTHRODYSAESTHESIA SYNDROME [None]
